FAERS Safety Report 7186626-3 (Version None)
Quarter: 2010Q4

REPORT INFORMATION
  Report Type: 
  Country: None (occurrence: None)
  Receive Date: 20101222
  Receipt Date: 20101208
  Transmission Date: 20110411
  Serious: Yes (Other)
  Sender: FDA-Public Use
  Company Number: US-ROCHE-727568

PATIENT
  Sex: Male
  Weight: 83.9 kg

DRUGS (1)
  1. ACCUTANE [Suspect]
     Indication: ACNE
     Dosage: INGESTED IN APPROXIMATELY SPRING 1996 THROUGH SUMMER 1996
     Route: 065
     Dates: start: 19960101

REACTIONS (6)
  - ABDOMINAL PAIN [None]
  - COLITIS ULCERATIVE [None]
  - DEPRESSION [None]
  - IRRITABLE BOWEL SYNDROME [None]
  - NAUSEA [None]
  - RECTAL HAEMORRHAGE [None]
